FAERS Safety Report 24813614 (Version 1)
Quarter: 2025Q1

REPORT INFORMATION
  Report Type: Spontaneous
  Country: ES (occurrence: ES)
  Receive Date: 20250107
  Receipt Date: 20250107
  Transmission Date: 20250408
  Serious: Yes (Other)
  Sender: ROCHE
  Company Number: ES-ROCHE-3577405

PATIENT
  Age: 35 Year
  Sex: Female
  Weight: 83.8 kg

DRUGS (3)
  1. OCRELIZUMAB [Suspect]
     Active Substance: OCRELIZUMAB
     Indication: Product used for unknown indication
     Dosage: THE LAST DOSE OF OCRELIZUMAB ADMINISTERED WAS ON 20/DEC/2023
     Route: 065
     Dates: start: 20201215
  2. CYANOCOBALAMIN\FOLIC ACID\POTASSIUM IODIDE [Concomitant]
     Active Substance: CYANOCOBALAMIN\FOLIC ACID\POTASSIUM IODIDE
  3. LORATADINE [Concomitant]
     Active Substance: LORATADINE

REACTIONS (2)
  - Maternal exposure before pregnancy [Unknown]
  - Abortion spontaneous [Unknown]
